FAERS Safety Report 7989722-3 (Version None)
Quarter: 2011Q4

REPORT INFORMATION
  Report Type: 
  Country: None (occurrence: None)
  Receive Date: 20111219
  Receipt Date: 20111205
  Transmission Date: 20120403
  Serious: Yes (Hospitalization)
  Sender: FDA-Public Use
  Company Number: US-ELI_LILLY_AND_COMPANY-US201111004225

PATIENT
  Sex: Female
  Weight: 63.9 kg

DRUGS (23)
  1. COZAAR [Concomitant]
     Dosage: UNK
     Dates: start: 20110101
  2. RECLAST [Concomitant]
     Dosage: UNK, QOD
     Dates: start: 20090629
  3. TYLENOL                                 /SCH/ [Concomitant]
     Indication: ARTHRALGIA
     Dosage: 500 MG, QD
  4. FORTEO [Suspect]
     Dosage: 20 UG, QD
     Route: 058
  5. ATENOLOL [Concomitant]
     Dosage: UNK
     Dates: start: 20000101
  6. SYNTHROID [Concomitant]
     Dosage: UNK
     Dates: start: 19570101
  7. COZAAR [Concomitant]
     Dosage: UNK
     Dates: start: 20101020
  8. PREDNISONE TAB [Concomitant]
     Dosage: UNK, UNKNOWN
  9. VITAMIN D [Concomitant]
     Dosage: UNK
     Dates: start: 20061115
  10. DEMADEX [Concomitant]
     Indication: FLUID RETENTION
     Dosage: UNK, PRN
     Dates: start: 20070501
  11. IBUPROFEN [Concomitant]
     Dosage: UNK, PRN
  12. ZOLOFT [Concomitant]
     Dosage: 25 MG, QD
     Dates: start: 20110901
  13. FORTEO [Suspect]
     Dosage: 20 UG, QD
     Route: 058
  14. ZYRTEC [Concomitant]
     Dosage: UNK, PRN
     Dates: start: 20000101
  15. HIDROCLOROTIAZIDA [Concomitant]
     Dosage: UNK
     Dates: start: 20110101
  16. XANAX [Concomitant]
     Dosage: UNK, PRN
  17. NEURONTIN [Concomitant]
     Dosage: 300 MG, EVERY HOUR
  18. METHOTREXATE [Concomitant]
     Dosage: 12.5 MG, WEEKLY (1/W)
     Dates: start: 20100919
  19. FISH [Concomitant]
     Dosage: UNK
  20. PREDNISONE TAB [Concomitant]
     Dosage: 10 MG, QD
  21. CALCIUM W/VITAMIN D NOS [Concomitant]
     Dosage: 500 MG, TID
     Dates: start: 20050101
  22. SPIRIVA [Concomitant]
     Dosage: UNK
     Dates: start: 20051201
  23. PREDNISONE TAB [Concomitant]
     Dosage: 5 MG, QD

REACTIONS (5)
  - CHRONIC OBSTRUCTIVE PULMONARY DISEASE [None]
  - ARTHRALGIA [None]
  - INJECTION SITE ERYTHEMA [None]
  - HYPERTENSION [None]
  - DYSPNOEA [None]
